FAERS Safety Report 25550441 (Version 5)
Quarter: 2025Q4

REPORT INFORMATION
  Report Type: Spontaneous
  Country: EU (occurrence: EU)
  Receive Date: 20250714
  Receipt Date: 20251120
  Transmission Date: 20260119
  Serious: Yes (Other)
  Sender: TAKEDA
  Company Number: EU-TAKEDA-2025TUS057812

PATIENT
  Age: 35 Year
  Sex: Female

DRUGS (4)
  1. HYQVIA [Suspect]
     Active Substance: HUMAN IMMUNOGLOBULIN G\HYALURONIDASE (HUMAN RECOMBINANT)
     Indication: Immunodeficiency common variable
     Dosage: 400 MILLIGRAM, Q4WEEKS
  2. HYQVIA [Suspect]
     Active Substance: HUMAN IMMUNOGLOBULIN G\HYALURONIDASE (HUMAN RECOMBINANT)
     Dosage: UNK
  3. HYQVIA [Suspect]
     Active Substance: HUMAN IMMUNOGLOBULIN G\HYALURONIDASE (HUMAN RECOMBINANT)
     Dosage: UNK
  4. HYQVIA [Suspect]
     Active Substance: HUMAN IMMUNOGLOBULIN G\HYALURONIDASE (HUMAN RECOMBINANT)
     Dosage: UNK UNK, 1/WEEK

REACTIONS (25)
  - Injection site vesicles [Recovered/Resolved]
  - Injection site discomfort [Recovered/Resolved]
  - Injection site necrosis [Unknown]
  - Injection site pain [Recovered/Resolved]
  - Needle issue [Recovered/Resolved]
  - Injection site pruritus [Recovered/Resolved]
  - Skin lesion [Recovered/Resolved]
  - Oral pain [Recovered/Resolved]
  - Aphthous ulcer [Recovered/Resolved]
  - Skin reaction [Recovered/Resolved]
  - Inflammation [Recovered/Resolved]
  - Vascular injury [Recovered/Resolved]
  - Injection site vesicles [Recovered/Resolved]
  - Oral mucosal blistering [Unknown]
  - Headache [Recovering/Resolving]
  - Injection site hypoaesthesia [Unknown]
  - Injection site discolouration [Unknown]
  - Weight decreased [Unknown]
  - Puncture site pain [Unknown]
  - Skin infection [Unknown]
  - Musculoskeletal stiffness [Not Recovered/Not Resolved]
  - Pain [Unknown]
  - Irritability [Recovered/Resolved]
  - Oropharyngeal pain [Unknown]
  - Blister [Recovered/Resolved]

NARRATIVE: CASE EVENT DATE: 20250601
